FAERS Safety Report 9471178 (Version 2)
Quarter: 2013Q3

REPORT INFORMATION
  Report Type: Spontaneous
  Country: US (occurrence: US)
  Receive Date: 20130822
  Receipt Date: 20130919
  Transmission Date: 20140515
  Serious: Yes (Hospitalization, Other)
  Sender: FDA-Public Use
  Company Number: US-JNJFOC-20130808030

PATIENT
  Sex: Female
  Weight: 102.51 kg

DRUGS (26)
  1. REMICADE [Suspect]
     Indication: CROHN^S DISEASE
     Route: 042
     Dates: start: 2008
  2. REMICADE [Suspect]
     Indication: CROHN^S DISEASE
     Route: 042
  3. REMICADE [Suspect]
     Indication: CROHN^S DISEASE
     Route: 042
     Dates: start: 2007, end: 2008
  4. REMICADE [Suspect]
     Indication: CROHN^S DISEASE
     Route: 042
     Dates: start: 2002, end: 2007
  5. REMICADE [Suspect]
     Indication: CROHN^S DISEASE
     Route: 042
     Dates: start: 2000, end: 2001
  6. TYLENOL [Concomitant]
     Indication: PREMEDICATION
     Route: 065
     Dates: start: 2012
  7. FOLIC ACID [Concomitant]
     Indication: RHEUMATOID ARTHRITIS
     Route: 048
     Dates: start: 2010
  8. GABAPENTIN [Concomitant]
     Indication: RHEUMATOID ARTHRITIS
     Route: 048
     Dates: start: 2010
  9. GABAPENTIN [Concomitant]
     Indication: FIBROMYALGIA
     Route: 048
     Dates: start: 2010
  10. LEXAPRO [Concomitant]
     Indication: DEPRESSION
     Route: 048
     Dates: start: 2011
  11. PROTONIX [Concomitant]
     Indication: GASTROOESOPHAGEAL REFLUX DISEASE
     Route: 048
     Dates: start: 2010
  12. WELLBUTRIN [Concomitant]
     Indication: DEPRESSION
     Route: 048
     Dates: start: 2012
  13. MORPHINE [Concomitant]
     Indication: PAIN
     Route: 048
     Dates: start: 2011
  14. MORPHINE [Concomitant]
     Indication: PAIN
     Route: 048
     Dates: start: 2011
  15. METHOTREXATE [Concomitant]
     Indication: CROHN^S DISEASE
     Route: 058
     Dates: start: 2006
  16. JANUVIA [Concomitant]
     Indication: DIABETES MELLITUS
     Route: 048
     Dates: start: 2013
  17. SENOKOT [Concomitant]
     Indication: ABNORMAL FAECES
     Route: 048
  18. VITAMIN B3 [Concomitant]
     Route: 048
  19. VITAMIN B12 [Concomitant]
     Indication: NAUSEA
     Route: 048
  20. PERCOCET [Concomitant]
     Indication: PAIN
     Dosage: 10/325 MG
     Route: 048
     Dates: start: 2011
  21. LEVEMIR [Concomitant]
     Indication: DIABETES MELLITUS
     Dosage: 15UNITS
     Route: 058
     Dates: start: 2011
  22. BENADRYL [Concomitant]
     Indication: PREMEDICATION
     Route: 048
     Dates: start: 2012
  23. BENADRYL [Concomitant]
     Indication: PRURITUS
     Route: 048
     Dates: start: 2012
  24. ZOFRAN [Concomitant]
     Indication: PREMEDICATION
     Route: 065
     Dates: start: 2012
  25. ATIVAN [Concomitant]
     Indication: PREMEDICATION
     Route: 065
     Dates: start: 2012
  26. PRENATAL VITAMINS [Concomitant]
     Indication: ROUTINE HEALTH MAINTENANCE
     Route: 048
     Dates: start: 2012

REACTIONS (10)
  - Gastrointestinal pain [Recovered/Resolved]
  - Diabetes mellitus [Unknown]
  - Uterine cervix ulcer [Recovered/Resolved]
  - Depression [Not Recovered/Not Resolved]
  - Dehydration [Not Recovered/Not Resolved]
  - Drug ineffective [Unknown]
  - Crohn^s disease [Not Recovered/Not Resolved]
  - Pain [Recovered/Resolved]
  - Adverse drug reaction [Recovered/Resolved]
  - Reproductive tract disorder [Unknown]
